FAERS Safety Report 7941917-0 (Version None)
Quarter: 2011Q4

REPORT INFORMATION
  Report Type: 
  Country: None (occurrence: None)
  Receive Date: 20111128
  Receipt Date: 20111114
  Transmission Date: 20120403
  Serious: No
  Sender: FDA-Public Use
  Company Number: US-B.I. PHARMACEUTICALS,INC./RIDGEFIELD-2011-BP-26210BP

PATIENT
  Sex: Female

DRUGS (9)
  1. NITROGLYCERIN [Concomitant]
     Indication: CHEST PAIN
     Route: 048
     Dates: start: 20111006
  2. PROAIR HFA [Concomitant]
     Indication: ASTHMA
     Dates: start: 20090101
  3. LEVOTHYROXINE SODIUM [Concomitant]
     Indication: HYPOTHYROIDISM
     Dates: start: 19210101
  4. ACETAMINOPHEN [Concomitant]
     Indication: ARTHRITIS
     Dosage: 1300 MG
     Route: 048
     Dates: start: 20070101
  5. SYMBICORT [Concomitant]
     Indication: ASTHMA
     Dates: start: 20090101
  6. MULTAQ [Suspect]
     Indication: ATRIAL FIBRILLATION
     Dosage: 400 MG
     Route: 048
     Dates: start: 20111003
  7. DIOVAN [Concomitant]
     Indication: HYPERTENSION
     Dates: start: 20060101
  8. PRADAXA [Suspect]
     Indication: ATRIAL FIBRILLATION
     Dosage: 150 MG
     Route: 048
     Dates: start: 20111003
  9. COREG [Suspect]
     Indication: CARDIAC DISORDER
     Dosage: 25 MG
     Route: 048
     Dates: start: 20111003

REACTIONS (3)
  - CHEST PAIN [None]
  - DIZZINESS [None]
  - PARAESTHESIA [None]
